FAERS Safety Report 13247094 (Version 1)
Quarter: 2017Q1

REPORT INFORMATION
  Report Type: Spontaneous
  Country: US (occurrence: US)
  Receive Date: 20170217
  Receipt Date: 20170217
  Transmission Date: 20170428
  Serious: No
  Sender: FDA-Public Use
  Company Number: US-AMGEN-USASP2017021051

PATIENT
  Age: 53 Year
  Sex: Male

DRUGS (2)
  1. ENBREL [Suspect]
     Active Substance: ETANERCEPT
     Indication: PRODUCT USED FOR UNKNOWN INDICATION
     Dosage: UNK
     Route: 065
  2. HUMIRA [Suspect]
     Active Substance: ADALIMUMAB
     Indication: RHEUMATOID ARTHRITIS
     Dosage: 40 MG, Q2WK
     Route: 058
     Dates: start: 201607, end: 201609

REACTIONS (10)
  - Joint stiffness [Unknown]
  - Tenderness [Unknown]
  - Blister rupture [Unknown]
  - Activities of daily living impaired [Unknown]
  - Mobility decreased [Unknown]
  - Pain in extremity [Unknown]
  - Wound complication [Unknown]
  - Gait disturbance [Unknown]
  - Blister [Unknown]
  - Arthralgia [Unknown]

NARRATIVE: CASE EVENT DATE: 2016
